FAERS Safety Report 10961066 (Version 3)
Quarter: 2015Q3

REPORT INFORMATION
  Report Type: Spontaneous
  Country: US (occurrence: US)
  Receive Date: 20150327
  Receipt Date: 20150806
  Transmission Date: 20151125
  Serious: Yes (Other)
  Sender: FDA-Public Use
  Company Number: US-JNJFOC-20150311732

PATIENT
  Age: 76 Year
  Sex: Male
  Weight: 86.18 kg

DRUGS (4)
  1. XARELTO [Suspect]
     Active Substance: RIVAROXABAN
     Indication: THROMBOSIS
     Route: 048
     Dates: start: 20141129, end: 201502
  2. AMLODIPINE [Concomitant]
     Active Substance: AMLODIPINE BESYLATE
     Indication: CEREBROVASCULAR ACCIDENT
     Route: 048
     Dates: start: 2013
  3. LOSARTAN. [Concomitant]
     Active Substance: LOSARTAN
     Indication: CEREBROVASCULAR ACCIDENT
     Route: 048
     Dates: start: 2013
  4. METOPROLOL [Concomitant]
     Active Substance: METOPROLOL
     Indication: CEREBROVASCULAR ACCIDENT
     Route: 048
     Dates: start: 20141129

REACTIONS (6)
  - Incoherent [Not Recovered/Not Resolved]
  - Fall [Recovered/Resolved]
  - Eye haemorrhage [Recovering/Resolving]
  - Skin haemorrhage [Recovered/Resolved]
  - Dizziness [Not Recovered/Not Resolved]
  - Eye injury [Recovering/Resolving]

NARRATIVE: CASE EVENT DATE: 20141129
